FAERS Safety Report 15311194 (Version 2)
Quarter: 2018Q4

REPORT INFORMATION
  Report Type: Report from Study
  Country: US (occurrence: US)
  Receive Date: 20180823
  Receipt Date: 20181016
  Transmission Date: 20190204
  Serious: Yes (Hospitalization)
  Sender: FDA-Public Use
  Company Number: US-ROCHE-2173601

PATIENT
  Sex: Male

DRUGS (9)
  1. COTELLIC [Suspect]
     Active Substance: COBIMETINIB
     Indication: MALIGNANT MELANOMA
     Dosage: ONGOING : YES
     Route: 065
  2. ZELBORAF [Suspect]
     Active Substance: VEMURAFENIB
     Indication: MALIGNANT MELANOMA
     Route: 065
     Dates: start: 2017
  3. COTELLIC [Suspect]
     Active Substance: COBIMETINIB
     Dosage: ONGOING; YES
     Route: 065
  4. ZELBORAF [Suspect]
     Active Substance: VEMURAFENIB
     Dosage: ONGOING; YES
     Route: 065
  5. COTELLIC [Suspect]
     Active Substance: COBIMETINIB
     Indication: LYMPHOCYTIC LEUKAEMIA
     Dosage: FOR21 CONSECUTIVE DAYS ON, FOLLOWED BY 7 DAY REST
     Route: 065
     Dates: start: 2017
  6. COTELLIC [Suspect]
     Active Substance: COBIMETINIB
     Indication: MALIGNANT MELANOMA
     Dosage: ONGOING; NO
     Route: 065
  7. COTELLIC [Suspect]
     Active Substance: COBIMETINIB
     Dosage: ONGOING; NO
     Route: 065
  8. ZELBORAF [Suspect]
     Active Substance: VEMURAFENIB
     Indication: LYMPHOCYTIC LEUKAEMIA
     Dosage: ONGOING; NO
     Route: 065
  9. ZELBORAF [Suspect]
     Active Substance: VEMURAFENIB
     Indication: MALIGNANT MELANOMA
     Dosage: ONGOING : YES
     Route: 065

REACTIONS (1)
  - Dehydration [Unknown]
